FAERS Safety Report 20497133 (Version 1)
Quarter: 2022Q1

REPORT INFORMATION
  Report Type: Report from Study
  Country: US (occurrence: US)
  Receive Date: 20220221
  Receipt Date: 20220221
  Transmission Date: 20220423
  Serious: Yes (Hospitalization)
  Sender: FDA-Public Use
  Company Number: US-TAKEDA-US201935131

PATIENT
  Sex: Male

DRUGS (1)
  1. IDURSULFASE [Suspect]
     Active Substance: IDURSULFASE
     Indication: Mucopolysaccharidosis II
     Dosage: UNK UNK, 1/WEEK
     Route: 042
     Dates: start: 20170621

REACTIONS (4)
  - Tonsillectomy [Unknown]
  - Adenoidectomy [Unknown]
  - Catheter site induration [Not Recovered/Not Resolved]
  - Poor venous access [Not Recovered/Not Resolved]
